FAERS Safety Report 10082140 (Version 1)
Quarter: 2014Q2

REPORT INFORMATION
  Report Type: Spontaneous
  Country: JP (occurrence: JP)
  Receive Date: 20140416
  Receipt Date: 20140416
  Transmission Date: 20141212
  Serious: Yes (Hospitalization)
  Sender: FDA-Public Use
  Company Number: JP-JNJFOC-20140410172

PATIENT
  Age: 12 Year
  Sex: Male

DRUGS (5)
  1. REMICADE [Suspect]
     Indication: CROHN^S DISEASE
     Route: 042
     Dates: start: 2012
  2. REMICADE [Suspect]
     Indication: CROHN^S DISEASE
     Route: 042
     Dates: start: 2011
  3. PREDNISOLONE [Suspect]
     Indication: CROHN^S DISEASE
     Route: 065
     Dates: start: 2011
  4. PREDNISOLONE [Suspect]
     Indication: CROHN^S DISEASE
     Route: 065
  5. TACROLIMUS [Suspect]
     Indication: CROHN^S DISEASE
     Route: 065
     Dates: start: 201210

REACTIONS (4)
  - Histiocytosis haematophagic [Recovering/Resolving]
  - Anal fistula [Unknown]
  - Anal abscess [Unknown]
  - Drug ineffective [Unknown]
